FAERS Safety Report 9300318 (Version 1)
Quarter: 2013Q2

REPORT INFORMATION
  Report Type: Spontaneous
  Country: US (occurrence: US)
  Receive Date: 20130521
  Receipt Date: 20130521
  Transmission Date: 20140414
  Serious: No
  Sender: FDA-Public Use
  Company Number: US-BAYER-2013-062759

PATIENT
  Age: 67 Year
  Sex: Male

DRUGS (3)
  1. LEVITRA [Suspect]
     Indication: ERECTILE DYSFUNCTION
     Dosage: 20 MG,1-2/ WEEK
     Route: 048
     Dates: start: 1995, end: 20130515
  2. METFORMIN [Concomitant]
  3. RAMIPRIL [Concomitant]

REACTIONS (1)
  - Drug ineffective [None]
